FAERS Safety Report 25220423 (Version 1)
Quarter: 2025Q2

REPORT INFORMATION
  Report Type: Spontaneous
  Country: US (occurrence: None)
  Receive Date: 20250418
  Receipt Date: 20250418
  Transmission Date: 20250716
  Serious: Yes (Hospitalization)
  Sender: FDA-CTU
  Company Number: None

PATIENT
  Sex: Female

DRUGS (4)
  1. HUMIRA [Suspect]
     Active Substance: ADALIMUMAB
     Indication: Crohn^s disease
     Route: 058
     Dates: start: 20191023
  2. CALCIUM TAB 600MG [Concomitant]
  3. CEFDINIR [Concomitant]
     Active Substance: CEFDINIR
  4. LIPITOR TAB 20MG [Concomitant]

REACTIONS (1)
  - Blood test abnormal [None]
